FAERS Safety Report 7537623-7 (Version None)
Quarter: 2011Q2

REPORT INFORMATION
  Report Type: 
  Country: None (occurrence: None)
  Receive Date: 20110603
  Receipt Date: 20110518
  Transmission Date: 20111010
  Serious: Yes (Other)
  Sender: FDA-Public Use
  Company Number: 2011MA006134

PATIENT
  Age: 43 Year
  Sex: Female

DRUGS (1)
  1. RANITIDINE [Suspect]
     Indication: DYSPEPSIA
     Dosage: 150 MG, 1X. PO
     Route: 048

REACTIONS (1)
  - ANAPHYLACTIC REACTION [None]
